FAERS Safety Report 8385766-0 (Version None)
Quarter: 2012Q2

REPORT INFORMATION
  Report Type: 
  Country: None (occurrence: None)
  Receive Date: 20120523
  Receipt Date: 20120523
  Transmission Date: 20120825
  Serious: Yes (Hospitalization)
  Sender: FDA-Public Use
  Company Number: None

PATIENT
  Age: 56 Year
  Sex: Male
  Weight: 68 kg

DRUGS (1)
  1. VARENICLINE [Suspect]
     Indication: SMOKING CESSATION THERAPY
     Dosage: 1 MG BID PO
     Route: 048
     Dates: start: 20120222, end: 20120329

REACTIONS (6)
  - VOMITING [None]
  - CHEST DISCOMFORT [None]
  - NAUSEA [None]
  - DYSPNOEA [None]
  - ANGINA UNSTABLE [None]
  - PANIC ATTACK [None]
